FAERS Safety Report 15939366 (Version 1)
Quarter: 2019Q1

REPORT INFORMATION
  Report Type: Spontaneous
  Country: US (occurrence: US)
  Receive Date: 20190208
  Receipt Date: 20190208
  Transmission Date: 20190417
  Serious: No
  Sender: FDA-Public Use
  Company Number: NXG-15-011

PATIENT
  Age: 64 Year
  Sex: Female
  Weight: 66.36 kg

DRUGS (4)
  1. ZOFRAN [Concomitant]
     Active Substance: ONDANSETRON HYDROCHLORIDE
  2. PREDNISONE. [Concomitant]
     Active Substance: PREDNISONE
  3. CHENODAL [Suspect]
     Active Substance: CHENODIOL
     Indication: CROHN^S DISEASE
     Route: 048
     Dates: start: 20101021, end: 20101118
  4. VALIUM [Concomitant]
     Active Substance: DIAZEPAM

REACTIONS (3)
  - Meniere^s disease [Unknown]
  - Vomiting [Unknown]
  - Dizziness [Unknown]
